FAERS Safety Report 5394757-3 (Version None)
Quarter: 2007Q3

REPORT INFORMATION
  Report Type: 
  Country: None (occurrence: None)
  Receive Date: 20070723
  Receipt Date: 20070713
  Transmission Date: 20080115
  Serious: Yes (Life-Threatening, Hospitalization, Other)
  Sender: FDA-Public Use
  Company Number: JP-PFIZER INC-2007054288

PATIENT
  Sex: Female
  Weight: 72 kg

DRUGS (8)
  1. LIPITOR [Suspect]
     Indication: HYPERLIPIDAEMIA
     Dosage: DAILY DOSE:10MG-FREQ:QD: EVERY DAY
     Route: 048
     Dates: start: 20070101, end: 20070614
  2. LOSARTAN POTASSIUM [Concomitant]
     Route: 048
  3. ALDACTONE [Concomitant]
     Route: 048
  4. PIRETANIDE [Concomitant]
     Route: 048
  5. THYRADIN S [Concomitant]
     Route: 048
  6. CONSTAN [Concomitant]
     Route: 048
  7. NITOROL R [Concomitant]
     Route: 048
  8. ALLOPURINOL [Concomitant]
     Route: 048

REACTIONS (4)
  - CARDIOGENIC SHOCK [None]
  - HYPOKALAEMIA [None]
  - RHABDOMYOLYSIS [None]
  - VENTRICULAR TACHYCARDIA [None]
